FAERS Safety Report 4955260-5 (Version None)
Quarter: 2006Q1

REPORT INFORMATION
  Report Type: 
  Country: None (occurrence: None)
  Receive Date: 20060321
  Receipt Date: 20060310
  Transmission Date: 20060701
  Serious: Yes (Hospitalization)
  Sender: FDA-Public Use
  Company Number: 200609944

PATIENT
  Age: 66 Year
  Sex: Female

DRUGS (3)
  1. SANDOGLOBULIN [Suspect]
     Indication: POLYMYOSITIS
     Dosage: SEE IMAGE, IV
     Route: 042
     Dates: start: 20060210, end: 20060210
  2. SANDOGLOBULIN [Suspect]
     Indication: POLYMYOSITIS
     Dosage: SEE IMAGE, IV
     Route: 042
     Dates: start: 20060211, end: 20060211
  3. MOPRAL [Suspect]

REACTIONS (1)
  - AGRANULOCYTOSIS [None]
